FAERS Safety Report 4427882-1 (Version None)
Quarter: 2004Q3

REPORT INFORMATION
  Report Type: 
  Country: None (occurrence: None)
  Receive Date: 20040813
  Receipt Date: 20040805
  Transmission Date: 20050211
  Serious: Yes (Life-Threatening)
  Sender: FDA-Public Use
  Company Number: 8594

PATIENT
  Age: 38 Year
  Sex: Female

DRUGS (6)
  1. METHOTREXATE [Suspect]
     Dosage: 10 MG WEEKLY SC
     Route: 058
     Dates: start: 20000901, end: 20040930
  2. ENBREL [Suspect]
     Dosage: 25 MG 2/WK SC
     Route: 058
     Dates: start: 20021017, end: 20040630
  3. VIOXX [Concomitant]
  4. ATENOLOL [Concomitant]
  5. ASPIRIN TAB [Concomitant]
  6. CEPHALEXIN [Concomitant]

REACTIONS (5)
  - BACTERIAL INFECTION [None]
  - POSTOPERATIVE WOUND COMPLICATION [None]
  - SUBTOTAL HYSTERECTOMY [None]
  - VAGINAL DISCHARGE [None]
  - WOUND DEHISCENCE [None]
